FAERS Safety Report 5224670-3 (Version None)
Quarter: 2007Q1

REPORT INFORMATION
  Report Type: 
  Country: None (occurrence: None)
  Receive Date: 20070129
  Receipt Date: 20070129
  Transmission Date: 20070707
  Serious: No
  Sender: FDA-Public Use
  Company Number: None

PATIENT
  Sex: Female
  Weight: 79.09 kg

DRUGS (1)
  1. TEMOZOLOMIDE [Suspect]
     Dosage: 2030 MG
     Dates: start: 20061219, end: 20070101

REACTIONS (7)
  - ASTHENIA [None]
  - CHEST DISCOMFORT [None]
  - DECREASED APPETITE [None]
  - DEHYDRATION [None]
  - DYSPNOEA [None]
  - ORAL INTAKE REDUCED [None]
  - PULMONARY EMBOLISM [None]
